FAERS Safety Report 24957598 (Version 2)
Quarter: 2025Q1

REPORT INFORMATION
  Report Type: Report from Study
  Country: US (occurrence: US)
  Receive Date: 20250212
  Receipt Date: 20250227
  Transmission Date: 20250408
  Serious: Yes (Hospitalization, Other)
  Sender: ABBVIE
  Company Number: US-ABBVIE-6124027

PATIENT
  Age: 82 Year
  Sex: Male
  Weight: 90.264 kg

DRUGS (5)
  1. CREON [Suspect]
     Active Substance: PANCRELIPASE AMYLASE\PANCRELIPASE LIPASE\PANCRELIPASE PROTEASE
     Indication: Pancreatic failure
     Dosage: 2 CAPSULES
     Route: 048
     Dates: start: 20250129
  2. OMEPRAZOLE [Concomitant]
     Active Substance: OMEPRAZOLE
     Indication: Gastrooesophageal reflux disease
  3. BUMEX [Concomitant]
     Active Substance: BUMETANIDE
     Indication: Diuretic therapy
  4. VITAMINS [Concomitant]
     Active Substance: VITAMINS
     Indication: Product used for unknown indication
  5. ATORVASTATIN [Concomitant]
     Active Substance: ATORVASTATIN
     Indication: Product used for unknown indication

REACTIONS (11)
  - Asthenia [Recovering/Resolving]
  - Epistaxis [Recovered/Resolved with Sequelae]
  - Ascites [Recovering/Resolving]
  - Chronic kidney disease [Recovered/Resolved]
  - Fatigue [Recovering/Resolving]
  - Anaemia [Recovered/Resolved]
  - Pleural effusion [Recovering/Resolving]
  - Mental status changes [Recovered/Resolved]
  - Hypothermia [Recovered/Resolved]
  - Hypervolaemia [Recovered/Resolved]
  - B-cell lymphoma [Recovering/Resolving]

NARRATIVE: CASE EVENT DATE: 20250101
